FAERS Safety Report 15390532 (Version 1)
Quarter: 2018Q3

REPORT INFORMATION
  Report Type: Spontaneous
  Country: IN (occurrence: IN)
  Receive Date: 20180917
  Receipt Date: 20180917
  Transmission Date: 20181010
  Serious: Yes (Other)
  Sender: FDA-Public Use
  Company Number: IN-RICON PHARMA, LLC-RIC201809-000925

PATIENT
  Age: 45 Year
  Sex: Male
  Weight: 70 kg

DRUGS (3)
  1. XYLOMETAZOLINE [Suspect]
     Active Substance: XYLOMETAZOLINE
  2. GLYCOPYRROLATE. [Concomitant]
     Active Substance: GLYCOPYRROLATE
     Route: 030
  3. LIDOCAINE. [Suspect]
     Active Substance: LIDOCAINE
     Dosage: APPROXIMATELY 15 MG WAS INSTILLED IN RIGHT NOSTRIL

REACTIONS (2)
  - Stridor [Unknown]
  - Vocal cord dysfunction [Unknown]
